FAERS Safety Report 10636546 (Version 1)
Quarter: 2014Q4

REPORT INFORMATION
  Report Type: Spontaneous
  Country: NL (occurrence: NL)
  Receive Date: 20141207
  Receipt Date: 20141207
  Transmission Date: 20150529
  Serious: Yes (Hospitalization)
  Sender: FDA-Public Use
  Company Number: NL-TEVA-525062ISR

PATIENT
  Age: 76 Year
  Sex: Male

DRUGS (8)
  1. SIMVASTATINE TABLET 20MG [Concomitant]
     Dosage: 40 MILLIGRAM DAILY; TWICE DAILY 20 MG
     Route: 048
  2. ASCAL BRISPER BRUISTABLET 38MG [Concomitant]
     Dosage: 1 DOSAGE FORMS DAILY;
     Route: 048
  3. FOLIUMZUUR TABLET 2,5MG [Concomitant]
     Dosage: ONCE DAILY 2.5 MG (NOT ON MTX DAY)
     Route: 048
  4. CALCI CHEW D3 KAUWTABLET  500MG/800IE [Concomitant]
     Dosage: ONCE DAILY ONE TABLET
     Route: 048
  5. METHOTREXATE (METHOTREXATE SODIUM) [Suspect]
     Active Substance: METHOTREXATE SODIUM
     Indication: ARTHRITIS
     Dosage: EXTRA INFO: 15 MG/WEEK
     Route: 048
     Dates: start: 20120803, end: 20131124
  6. BISOPROLOL FUMARAAT [Concomitant]
     Dosage: DOSE NOT FILLED IN
     Route: 048
  7. PREDNISON TABLET 5MG [Concomitant]
     Dosage: 10 MILLIGRAM DAILY; ONCE DAILY 10 MG
     Route: 048
  8. OMEPRAZOL CAPSULE MGA 20MG [Concomitant]
     Dosage: 20 MILLIGRAM DAILY;
     Route: 048

REACTIONS (1)
  - Cognitive disorder [Recovered/Resolved with Sequelae]

NARRATIVE: CASE EVENT DATE: 201307
